FAERS Safety Report 24354924 (Version 1)
Quarter: 2024Q3

REPORT INFORMATION
  Report Type: Spontaneous
  Country: CN (occurrence: CN)
  Receive Date: 20240923
  Receipt Date: 20240923
  Transmission Date: 20241016
  Serious: Yes (Hospitalization, Other)
  Sender: SUNOVION
  Company Number: CN-SMPA-2024SMP013264

PATIENT

DRUGS (6)
  1. LATUDA [Suspect]
     Active Substance: LURASIDONE HYDROCHLORIDE
     Indication: Affective disorder
     Dosage: 60 MG, QD
     Route: 048
     Dates: start: 20221209, end: 20221218
  2. LATUDA [Suspect]
     Active Substance: LURASIDONE HYDROCHLORIDE
     Dosage: 20 MG, QD
     Route: 048
  3. OLANZAPINE [Suspect]
     Active Substance: OLANZAPINE
     Indication: Affective disorder
     Dosage: 2.5 MG, QD
     Route: 048
     Dates: start: 20230213
  4. LITHIUM CARBONATE [Concomitant]
     Active Substance: LITHIUM CARBONATE
     Indication: Emotional disorder
     Dosage: 0.3 G, QD
     Route: 048
     Dates: start: 20240826
  5. PALIPERIDONE [Concomitant]
     Active Substance: PALIPERIDONE
     Indication: Emotional disorder
     Dosage: 6 MG, QD
     Route: 048
     Dates: start: 20240826
  6. FLUVOXAMINE [Concomitant]
     Active Substance: FLUVOXAMINE
     Indication: Emotional disorder
     Dosage: 50 MG, QD
     Route: 048
     Dates: start: 20240826

REACTIONS (9)
  - Restless legs syndrome [Recovering/Resolving]
  - Self-destructive behaviour [Unknown]
  - Negative thoughts [Unknown]
  - Anxiety [Unknown]
  - Formication [Unknown]
  - Myalgia [Unknown]
  - Product use in unapproved indication [Unknown]
  - Product administered to patient of inappropriate age [Unknown]
  - Underdose [Unknown]

NARRATIVE: CASE EVENT DATE: 20221209
